FAERS Safety Report 10928737 (Version 2)
Quarter: 2015Q2

REPORT INFORMATION
  Report Type: Spontaneous
  Country: US (occurrence: US)
  Receive Date: 20150319
  Receipt Date: 20150524
  Transmission Date: 20150821
  Serious: No
  Sender: FDA-Public Use
  Company Number: US-JNJFOC-20130710850

PATIENT
  Age: 45 Year
  Sex: Female

DRUGS (9)
  1. METHYLPHENIDATE HYDROCHLORIDE. [Suspect]
     Active Substance: METHYLPHENIDATE HYDROCHLORIDE
     Indication: MAJOR DEPRESSION
     Route: 048
  2. METHYLPHENIDATE HYDROCHLORIDE. [Suspect]
     Active Substance: METHYLPHENIDATE HYDROCHLORIDE
     Indication: COMPULSIVE HOARDING
     Dosage: 72 MG PER DAY
     Route: 048
  3. METHYLPHENIDATE HYDROCHLORIDE. [Suspect]
     Active Substance: METHYLPHENIDATE HYDROCHLORIDE
     Indication: COMPULSIVE HOARDING
     Route: 048
  4. METHYLPHENIDATE HYDROCHLORIDE. [Suspect]
     Active Substance: METHYLPHENIDATE HYDROCHLORIDE
     Indication: SOCIAL PHOBIA
     Route: 048
  5. METHYLPHENIDATE HYDROCHLORIDE. [Suspect]
     Active Substance: METHYLPHENIDATE HYDROCHLORIDE
     Indication: MAJOR DEPRESSION
     Dosage: 72 MG PER DAY
     Route: 048
  6. METHYLPHENIDATE HYDROCHLORIDE. [Suspect]
     Active Substance: METHYLPHENIDATE HYDROCHLORIDE
     Indication: SOCIAL PHOBIA
     Dosage: 18 MG PER DAY
     Route: 048
  7. METHYLPHENIDATE HYDROCHLORIDE. [Suspect]
     Active Substance: METHYLPHENIDATE HYDROCHLORIDE
     Indication: MAJOR DEPRESSION
     Dosage: 18 MG PER DAY
     Route: 048
  8. METHYLPHENIDATE HYDROCHLORIDE. [Suspect]
     Active Substance: METHYLPHENIDATE HYDROCHLORIDE
     Indication: COMPULSIVE HOARDING
     Dosage: 18 MG PER DAY
     Route: 048
  9. METHYLPHENIDATE HYDROCHLORIDE. [Suspect]
     Active Substance: METHYLPHENIDATE HYDROCHLORIDE
     Indication: SOCIAL PHOBIA
     Dosage: 72 MG PER DAY
     Route: 048

REACTIONS (1)
  - Palpitations [Unknown]
